FAERS Safety Report 4549581-8 (Version None)
Quarter: 2005Q1

REPORT INFORMATION
  Report Type: 
  Country: None (occurrence: None)
  Receive Date: 20050106
  Receipt Date: 20041229
  Transmission Date: 20050727
  Serious: Yes (Hospitalization)
  Sender: FDA-Public Use
  Company Number: 2005000198

PATIENT
  Age: 30 Year
  Sex: Female

DRUGS (2)
  1. SPIRONOLACTONE [Suspect]
     Indication: HYPERTRICHOSIS
     Dosage: 100 MG (100 MG, DAILY INTERVAL: EVERY DAY), ORAL
     Route: 048
     Dates: start: 20030913, end: 20030929
  2. DIANE (CYPROTERONE ACETATE, ETHINYL ESTRADIOL) [Suspect]
     Indication: HYPERTRICHOSIS
     Dosage: ONE DOSE (DAILY INTERVAL: EVERY DAY), ORAL
     Route: 048
     Dates: start: 20030913, end: 20030929

REACTIONS (6)
  - BLOOD THYROID STIMULATING HORMONE INCREASED [None]
  - DIZZINESS [None]
  - DYSPNOEA [None]
  - HEADACHE [None]
  - NAUSEA [None]
  - VOMITING [None]
